FAERS Safety Report 12585921 (Version 3)
Quarter: 2016Q3

REPORT INFORMATION
  Report Type: Spontaneous
  Country: US (occurrence: US)
  Receive Date: 20160725
  Receipt Date: 20160808
  Transmission Date: 20161109
  Serious: No
  Sender: FDA-Public Use
  Company Number: US-BEH-2016062339

PATIENT
  Sex: Male
  Weight: 69 kg

DRUGS (19)
  1. SINGULAIR [Concomitant]
     Active Substance: MONTELUKAST SODIUM
  2. LEVALBUTEROL. [Concomitant]
     Active Substance: LEVALBUTEROL
  3. SODIUM CHLORIDE. [Concomitant]
     Active Substance: SODIUM CHLORIDE
  4. HIZENTRA [Suspect]
     Active Substance: HUMAN IMMUNOGLOBULIN G
     Indication: IMMUNODEFICIENCY
     Route: 058
  5. DEPAKOTE [Concomitant]
     Active Substance: DIVALPROEX SODIUM
  6. BETHANECHOL [Concomitant]
     Active Substance: BETHANECHOL
  7. SLO MAG [Concomitant]
  8. HIZENTRA [Suspect]
     Active Substance: HUMAN IMMUNOGLOBULIN G
     Route: 058
  9. CLONIDINE. [Concomitant]
     Active Substance: CLONIDINE
  10. DIPHENHYDRAMINE. [Concomitant]
     Active Substance: DIPHENHYDRAMINE
  11. EPIPEN [Concomitant]
     Active Substance: EPINEPHRINE
  12. HIZENTRA [Suspect]
     Active Substance: HUMAN IMMUNOGLOBULIN G
     Route: 058
  13. QVAR [Concomitant]
     Active Substance: BECLOMETHASONE DIPROPIONATE
  14. L-M-X [Concomitant]
  15. FELBATOL [Concomitant]
     Active Substance: FELBAMATE
  16. VIMPAT [Concomitant]
     Active Substance: LACOSAMIDE
  17. PROBIOTIC [Concomitant]
     Active Substance: PROBIOTICS NOS
  18. TRANXENE T-TAB [Concomitant]
     Active Substance: CLORAZEPATE DIPOTASSIUM
  19. ZYRTEC [Concomitant]
     Active Substance: CETIRIZINE HYDROCHLORIDE

REACTIONS (2)
  - Nasal congestion [Unknown]
  - Infection [Unknown]
